FAERS Safety Report 5231839-0 (Version None)
Quarter: 2007Q1

REPORT INFORMATION
  Report Type: 
  Country: None (occurrence: None)
  Receive Date: 20070206
  Receipt Date: 20061004
  Transmission Date: 20070707
  Serious: Yes (Other)
  Sender: FDA-Public Use
  Company Number: PR-PFIZER INC-2006123243

PATIENT
  Age: 39 Year
  Sex: Female

DRUGS (2)
  1. VIRACEPT [Suspect]
     Indication: HIV INFECTION
     Dosage: DAILY DOSE:2500MG
     Route: 048
  2. COMBIVIR [Suspect]
     Indication: HIV INFECTION
     Dosage: TEXT:2 TABS OR CAPSULES
     Route: 048
     Dates: start: 20060120

REACTIONS (2)
  - HYPERTENSION [None]
  - PREMATURE SEPARATION OF PLACENTA [None]
